FAERS Safety Report 12816260 (Version 1)
Quarter: 2016Q4

REPORT INFORMATION
  Report Type: Spontaneous
  Country: US (occurrence: US)
  Receive Date: 20161005
  Receipt Date: 20161005
  Transmission Date: 20170207
  Serious: No
  Sender: FDA-Public Use
  Company Number: US-AMGEN-USASP2015127534

PATIENT
  Age: 64 Year
  Sex: Female
  Weight: 51.7 kg

DRUGS (1)
  1. PROLIA [Suspect]
     Active Substance: DENOSUMAB
     Indication: OSTEOPOROSIS POSTMENOPAUSAL
     Dosage: 60 MG, Q6MO
     Route: 058
     Dates: start: 20151023, end: 20151204

REACTIONS (12)
  - Cheilitis [Unknown]
  - Rash [Not Recovered/Not Resolved]
  - Urticaria [Unknown]
  - Papule [Unknown]
  - Back pain [Not Recovered/Not Resolved]
  - Arthralgia [Not Recovered/Not Resolved]
  - Lip exfoliation [Not Recovered/Not Resolved]
  - Erythema [Unknown]
  - Lip swelling [Unknown]
  - Skin reaction [Unknown]
  - Chapped lips [Unknown]
  - Pain [Unknown]

NARRATIVE: CASE EVENT DATE: 20151106
